FAERS Safety Report 22055993 (Version 2)
Quarter: 2023Q1

REPORT INFORMATION
  Report Type: Report from Study
  Country: US (occurrence: US)
  Receive Date: 20230302
  Receipt Date: 20230306
  Transmission Date: 20230418
  Serious: Yes (Death, Other)
  Sender: FDA-Public Use
  Company Number: US-JAZZ-2023-US-003772

PATIENT
  Age: 52 Year
  Sex: Female

DRUGS (1)
  1. CYTARABINE\DAUNORUBICIN [Suspect]
     Active Substance: CYTARABINE\DAUNORUBICIN
     Indication: Acute myeloid leukaemia refractory
     Dosage: 102 MILLIGRAM DAYS 1, 3, AND 5
     Route: 042
     Dates: start: 20230120, end: 20230124

REACTIONS (2)
  - Disease progression [Fatal]
  - Pericardial effusion [Unknown]

NARRATIVE: CASE EVENT DATE: 20230213
